FAERS Safety Report 10078208 (Version 1)
Quarter: 2014Q2

REPORT INFORMATION
  Report Type: Spontaneous
  Country: CA (occurrence: CA)
  Receive Date: 20140415
  Receipt Date: 20140415
  Transmission Date: 20141212
  Serious: Yes (Hospitalization, Other)
  Sender: FDA-Public Use
  Company Number: CA-AMGEN-CANSP2014025451

PATIENT
  Age: 52 Year
  Sex: Female

DRUGS (25)
  1. ARANESP [Suspect]
     Indication: RENAL FAILURE CHRONIC
     Dosage: 40 MUG, UNK
     Route: 065
     Dates: start: 20140122
  2. EDECRIN                            /00020501/ [Concomitant]
     Dosage: 75 MG, BID
  3. FERROUS SULPHATE                   /00023503/ [Concomitant]
     Dosage: 300 MG, QD
  4. DOMPERIDONE [Concomitant]
     Dosage: 10 MG, TID
  5. IMURAN                             /00001501/ [Concomitant]
     Indication: RUBBER SENSITIVITY
     Dosage: 50 MG, BID
  6. CORTISONE [Concomitant]
     Indication: BLISTER
  7. ONDANSETRON [Concomitant]
     Dosage: 8 MG, TID
  8. PRAZOSIN HYDROCHLORIDE [Concomitant]
     Dosage: 2 MG, BID
  9. SYNTHROID [Concomitant]
     Dosage: 125 MUG, UNK
  10. AMLODIPINE [Concomitant]
     Dosage: 10 MG, QD
  11. ZOPICLONE [Concomitant]
     Dosage: 11.25 MG, QHS
  12. GABAPENTIN [Concomitant]
     Dosage: 200 MG, QHS
  13. OMEPRAZOLE MAGNESIUM [Concomitant]
     Dosage: 20 MG, BID
  14. METOPROLOL [Concomitant]
     Dosage: 50 MG, BID
  15. PAXIL                              /00500401/ [Concomitant]
     Dosage: 20 MG, QD
  16. ATORVASTATIN CALCIUM [Concomitant]
     Dosage: 10 MG, QHS
  17. ASA [Concomitant]
     Dosage: 81 MG, QD
  18. ATTAPULGITE [Concomitant]
     Indication: DIARRHOEA
     Dosage: 300 MG, UNK
     Dates: start: 1999
  19. PECTIN [Concomitant]
     Indication: DIARRHOEA
     Dosage: 71.4 MG, UNK
     Dates: start: 1999
  20. MORPHINE [Concomitant]
     Indication: DIARRHOEA
     Dosage: 1.2 MG, UNK
     Dates: start: 1999
  21. HYDROXYZINE [Concomitant]
     Dosage: 25 MG, BID
  22. FENTANYL [Concomitant]
     Dosage: 100 MUG, BID
  23. NITRO                              /00003201/ [Concomitant]
     Dosage: 0.4 UNK, QD
  24. HUMULIN N [Concomitant]
     Dosage: 12 UNIT IN THE MORNING, 16 UNIT AT BEDTIME
  25. HUMALOG [Concomitant]
     Dosage: 1 UNIT/10G OF CARBOHYDRATE

REACTIONS (10)
  - Flank pain [Unknown]
  - Kidney infection [Recovered/Resolved]
  - Streptococcal infection [Recovered/Resolved]
  - Staphylococcal infection [Unknown]
  - Pyrexia [Unknown]
  - Dehydration [Unknown]
  - Abdominal pain [Unknown]
  - Dyspnoea exertional [Recovering/Resolving]
  - Fluid retention [Recovering/Resolving]
  - Catheter site inflammation [Unknown]
